FAERS Safety Report 6662154-6 (Version None)
Quarter: 2010Q1

REPORT INFORMATION
  Report Type: 
  Country: None (occurrence: None)
  Receive Date: 20100329
  Receipt Date: 20100319
  Transmission Date: 20100710
  Serious: Yes (Other)
  Sender: FDA-Public Use
  Company Number: 232932J10USA

PATIENT
  Age: 42 Year
  Sex: Female
  Weight: 75 kg

DRUGS (3)
  1. REBIF [Suspect]
     Indication: MULTIPLE SCLEROSIS
     Dosage: 44 MCG, 3 IN 1 WEEKS, SUBCUTANEOUS
     Route: 058
     Dates: start: 20090910, end: 20090910
  2. REBIF [Suspect]
     Indication: MULTIPLE SCLEROSIS
     Dosage: 44 MCG, 3 IN 1 WEEKS, SUBCUTANEOUS
     Route: 058
     Dates: start: 20071024, end: 20091101
  3. FLU VACCINE (VACCINES) [Suspect]
     Indication: ANTIVIRAL PROPHYLAXIS
     Dates: start: 20090910, end: 20090910

REACTIONS (2)
  - LYMPHADENOPATHY [None]
  - PULMONARY SARCOIDOSIS [None]
